FAERS Safety Report 6464279-7 (Version None)
Quarter: 2009Q4

REPORT INFORMATION
  Report Type: 
  Country: None (occurrence: None)
  Receive Date: 20091201
  Receipt Date: 20091120
  Transmission Date: 20100525
  Serious: Yes (Death)
  Sender: FDA-Public Use
  Company Number: US-WYE-H12387409

PATIENT

DRUGS (5)
  1. RAPAMUNE [Suspect]
     Indication: MYELOID LEUKAEMIA
     Dosage: LOADING DOSE OF 15 MG ON DAY 1
  2. RAPAMUNE [Suspect]
     Dosage: 5 MG DAILY ON DAYS 2-7
  3. ETOPOSIDE [Suspect]
     Indication: MYELOID LEUKAEMIA
     Dosage: 100 MG/M^2/DAY, DAYS 1-5
  4. CYTARABINE [Suspect]
     Indication: MYELOID LEUKAEMIA
     Dosage: 1000 MG/M^2/DAY, DAYS 1-5
  5. MITOXANTRONE [Suspect]
     Indication: MYELOID LEUKAEMIA
     Dosage: 8 MG/M^2/DAY, DAYS 1-5

REACTIONS (2)
  - BACTERIAL INFECTION [None]
  - BONE MARROW FAILURE [None]
